FAERS Safety Report 5065878-X (Version None)
Quarter: 2006Q3

REPORT INFORMATION
  Report Type: 
  Country: None (occurrence: None)
  Receive Date: 20060728
  Receipt Date: 20060728
  Transmission Date: 20061208
  Serious: No
  Sender: FDA-Public Use
  Company Number: None

PATIENT
  Age: 74 Year
  Sex: Male
  Weight: 78.9 kg

DRUGS (1)
  1. GALANTAMINE HYDROBROMIDE [Suspect]
     Indication: MEMORY IMPAIRMENT
     Dosage: 12 MG BID PO
     Route: 048
     Dates: start: 20051103, end: 20060603

REACTIONS (5)
  - ASTHENIA [None]
  - BRADYCARDIA [None]
  - DIZZINESS [None]
  - DYSPNOEA [None]
  - HYPOTENSION [None]
